FAERS Safety Report 8567829 (Version 4)
Quarter: 2015Q1

REPORT INFORMATION
  Report Type: Report from Study
  Country: US (occurrence: US)
  Receive Date: 20120518
  Receipt Date: 20150307
  Transmission Date: 20150721
  Serious: Yes (Other)
  Sender: FDA-Public Use
  Company Number: US-BIOGENIDEC-2012BI016322

PATIENT
  Age: 49 Year
  Sex: Female

DRUGS (4)
  1. CLADRIBINE. [Concomitant]
     Active Substance: CLADRIBINE
  2. COPAXONE [Concomitant]
     Active Substance: GLATIRAMER ACETATE
  3. BETASERON [Concomitant]
     Active Substance: INTERFERON BETA-1B
  4. AVONEX [Suspect]
     Active Substance: INTERFERON BETA-1A
     Indication: MULTIPLE SCLEROSIS
     Route: 030
     Dates: start: 20100624

REACTIONS (7)
  - Monoclonal gammopathy [Unknown]
  - Physical examination abnormal [Unknown]
  - Thrombosis [Not Recovered/Not Resolved]
  - Visual impairment [Unknown]
  - Seizure [Not Recovered/Not Resolved]
  - Migraine [Unknown]
  - Uveitis [Unknown]

NARRATIVE: CASE EVENT DATE: 20120428
